FAERS Safety Report 11811556 (Version 1)
Quarter: 2015Q4

REPORT INFORMATION
  Report Type: Report from Study
  Country: US (occurrence: US)
  Receive Date: 20151208
  Receipt Date: 20151208
  Transmission Date: 20160305
  Serious: Yes (Other)
  Sender: FDA-Public Use
  Company Number: US-ABBVIE-15K-163-1510571-00

PATIENT
  Age: 62 Year
  Sex: Female
  Weight: 108.96 kg

DRUGS (1)
  1. HUMIRA [Suspect]
     Active Substance: ADALIMUMAB
     Indication: PSORIASIS
     Route: 058
     Dates: start: 2008, end: 201511

REACTIONS (7)
  - Glycosylated haemoglobin increased [Unknown]
  - Lupus-like syndrome [Not Recovered/Not Resolved]
  - Asthenia [Not Recovered/Not Resolved]
  - Stomatitis [Recovering/Resolving]
  - Blood creatinine increased [Unknown]
  - Photosensitivity reaction [Not Recovered/Not Resolved]
  - Nasal discomfort [Recovering/Resolving]

NARRATIVE: CASE EVENT DATE: 201505
